FAERS Safety Report 6057518-8 (Version None)
Quarter: 2009Q1

REPORT INFORMATION
  Report Type: 
  Country: None (occurrence: None)
  Receive Date: 20090129
  Receipt Date: 20090120
  Transmission Date: 20090719
  Serious: Yes (Hospitalization)
  Sender: FDA-Public Use
  Company Number: GB-ABBOTT-08P-167-0485540-00

PATIENT
  Age: 34 Year
  Sex: Male

DRUGS (17)
  1. CLARITHROMYCIN [Suspect]
     Indication: PSEUDOMONAS INFECTION
     Dosage: NOT REPORTED
  2. CLARITHROMYCIN [Suspect]
     Indication: MYCOBACTERIUM ABSCESSUS INFECTION
  3. OMEPRAZOLE [Suspect]
     Indication: GASTROOESOPHAGEAL REFLUX DISEASE
     Dosage: NOT REPORTED
  4. MINOCYCLINE HCL [Suspect]
     Indication: PSEUDOMONAS INFECTION
     Dosage: NOT REPORTED
  5. MINOCYCLINE HCL [Suspect]
     Indication: MYCOBACTERIUM ABSCESSUS INFECTION
  6. TOBRAMYCIN [Suspect]
     Indication: MYCOBACTERIUM ABSCESSUS INFECTION
     Dosage: NOT REPORTED
  7. TOBRAMYCIN [Suspect]
  8. INTERFERON GAMMA [Suspect]
     Indication: PSEUDOMONAS INFECTION
     Dosage: NOT REPORTED
  9. INTERFERON GAMMA [Suspect]
     Indication: MYCOBACTERIUM ABSCESSUS INFECTION
  10. MEROPENEM [Suspect]
     Indication: PSEUDOMONAS INFECTION
     Dosage: NOT REPORTED
  11. MEROPENEM [Suspect]
     Indication: MYCOBACTERIUM ABSCESSUS INFECTION
  12. COLOMYCIN [Suspect]
     Indication: PSEUDOMONAS INFECTION
     Dosage: NOT REPORTED
  13. COLOMYCIN [Suspect]
     Indication: MYCOBACTERIUM ABSCESSUS INFECTION
  14. AZITHROMYCIN [Suspect]
     Indication: DRUG USE FOR UNKNOWN INDICATION
     Dosage: NOT REPORTED
  15. CIPROFLOXACIN HCL [Suspect]
     Indication: DRUG USE FOR UNKNOWN INDICATION
     Dosage: NOT REPORTED
  16. TOBRAMYCIN [Concomitant]
     Indication: PSEUDOMONAS INFECTION
     Dosage: NOT REPORTED
  17. TOBI [Concomitant]
     Indication: DRUG USE FOR UNKNOWN INDICATION
     Route: 055

REACTIONS (11)
  - ABDOMINAL PAIN [None]
  - C-REACTIVE PROTEIN INCREASED [None]
  - CLOSTRIDIUM DIFFICILE COLITIS [None]
  - COLITIS [None]
  - DEHYDRATION [None]
  - DIARRHOEA [None]
  - HYPOTENSION [None]
  - NAUSEA [None]
  - PSEUDOMEMBRANOUS COLITIS [None]
  - PYREXIA [None]
  - TACHYCARDIA [None]
